FAERS Safety Report 23727346 (Version 4)
Quarter: 2024Q3

REPORT INFORMATION
  Report Type: Report from Study
  Country: CN (occurrence: CN)
  Receive Date: 20240410
  Receipt Date: 20240711
  Transmission Date: 20241017
  Serious: Yes (Hospitalization)
  Sender: PFIZER
  Company Number: CN-PFIZER INC-PV202400046096

PATIENT
  Age: 50 Year
  Sex: Female
  Weight: 47 kg

DRUGS (15)
  1. CYTARABINE [Suspect]
     Active Substance: CYTARABINE
     Indication: Acute myeloid leukaemia
     Dosage: 1400 MG, 1X/DAY
     Route: 041
     Dates: start: 20240105, end: 20240109
  2. CYTARABINE [Suspect]
     Active Substance: CYTARABINE
     Dosage: 2800 MG, Q12H
     Route: 041
     Dates: start: 20240308, end: 20240308
  3. CYTARABINE [Suspect]
     Active Substance: CYTARABINE
     Dosage: 2800 MG, Q12H
     Route: 041
     Dates: start: 20240310, end: 20240310
  4. CYTARABINE [Suspect]
     Active Substance: CYTARABINE
     Dosage: 2800 MG, Q12H
     Route: 041
     Dates: start: 20240312, end: 20240312
  5. INVESTIGATIONAL PRODUCT [Suspect]
     Active Substance: INVESTIGATIONAL PRODUCT
     Indication: Acute myeloid leukaemia
     Dosage: CYCLIC (1X/DAY)
     Route: 041
     Dates: start: 20240104, end: 20240104
  6. INVESTIGATIONAL PRODUCT [Suspect]
     Active Substance: INVESTIGATIONAL PRODUCT
     Dosage: D2 TO D8 DOSE, Q12H
     Route: 041
     Dates: start: 20240105, end: 20240111
  7. INVESTIGATIONAL PRODUCT [Suspect]
     Active Substance: INVESTIGATIONAL PRODUCT
     Dosage: D1, 1X/DAY
     Dates: start: 20240307, end: 20240307
  8. INVESTIGATIONAL PRODUCT [Suspect]
     Active Substance: INVESTIGATIONAL PRODUCT
     Dosage: D2 TO D8 DOSE, Q12H
     Dates: start: 20240308, end: 20240314
  9. MITOXANTRONE [Concomitant]
     Active Substance: MITOXANTRONE HYDROCHLORIDE
     Indication: Acute myeloid leukaemia
     Dosage: 8.4 MG, 1X/DAY (25/12.5 MILLIGRAM PER MILLILITRE)
     Route: 041
     Dates: start: 20240105, end: 20240109
  10. ETOPOSIDE [Concomitant]
     Active Substance: ETOPOSIDE
     Indication: Acute myeloid leukaemia
     Dosage: 140 MG, 1X/DAY(0.1/5 GRAM PER MILLILITRE)
     Route: 041
     Dates: start: 20240105, end: 20240107
  11. FLUCONAZOLE [Concomitant]
     Active Substance: FLUCONAZOLE
     Dosage: UNK
     Dates: start: 20240115
  12. BAI MEI SHE DU XUE NING MEI [Concomitant]
     Dosage: UNK
     Dates: start: 20240322, end: 20240401
  13. ETHAMSYLATE [Concomitant]
     Active Substance: ETHAMSYLATE
     Dosage: UNK (SOLUTION)
     Dates: start: 20240322, end: 20240326
  14. MEROPENEM [Concomitant]
     Active Substance: MEROPENEM
     Dosage: UNK
     Dates: start: 20240322, end: 20240403
  15. HUMAN INTERLEUKIN-11 [Concomitant]
     Dosage: UNK
     Dates: start: 20240322, end: 20240326

REACTIONS (1)
  - Febrile neutropenia [Recovered/Resolved]

NARRATIVE: CASE EVENT DATE: 20240322
